FAERS Safety Report 9628863 (Version 1)
Quarter: 2013Q4

REPORT INFORMATION
  Report Type: Spontaneous
  Country: US (occurrence: US)
  Receive Date: 20131017
  Receipt Date: 20131017
  Transmission Date: 20140711
  Serious: Yes (Other)
  Sender: FDA-Public Use
  Company Number: US-JNJFOC-20131007074

PATIENT
  Sex: Female
  Weight: 52.16 kg

DRUGS (1)
  1. ORTHO-NOVUM 7/7/7 [Suspect]
     Indication: CONTRACEPTION
     Route: 065
     Dates: start: 1987

REACTIONS (1)
  - Multiple sclerosis [Not Recovered/Not Resolved]
